FAERS Safety Report 8343732-5 (Version None)
Quarter: 2012Q2

REPORT INFORMATION
  Report Type: 
  Country: None (occurrence: None)
  Receive Date: 20120508
  Receipt Date: 20120508
  Transmission Date: 20120825
  Serious: No
  Sender: FDA-Public Use
  Company Number: None

PATIENT
  Sex: Female
  Weight: 86.182 kg

DRUGS (2)
  1. LYRICA [Suspect]
     Indication: FIBROMYALGIA
     Dates: start: 20100105, end: 20100801
  2. LYRICA [Concomitant]
     Indication: JOINT INJURY
     Dates: start: 20120401, end: 20120501

REACTIONS (10)
  - ROAD TRAFFIC ACCIDENT [None]
  - HYPOAESTHESIA [None]
  - HYPERTENSION [None]
  - SWELLING [None]
  - DYSPNOEA [None]
  - DYSPEPSIA [None]
  - WEIGHT INCREASED [None]
  - VISION BLURRED [None]
  - CENTRAL NERVOUS SYSTEM FUNCTION TEST ABNORMAL [None]
  - APHASIA [None]
